FAERS Safety Report 15233427 (Version 2)
Quarter: 2018Q3

REPORT INFORMATION
  Report Type: Spontaneous
  Country: CA (occurrence: CA)
  Receive Date: 20180802
  Receipt Date: 20180817
  Transmission Date: 20181010
  Serious: Yes (Other)
  Sender: FDA-Public Use
  Company Number: CA-PFIZER INC-2018237029

PATIENT
  Age: 67 Year
  Sex: Female

DRUGS (2)
  1. XELJANZ [Suspect]
     Active Substance: TOFACITINIB CITRATE
     Indication: RHEUMATOID ARTHRITIS
     Dosage: 5 MG, TWICE DAILY
     Route: 048
     Dates: start: 20180529, end: 201806
  2. XELJANZ [Suspect]
     Active Substance: TOFACITINIB CITRATE
     Dosage: 5 MG, TWICE DAILY
     Route: 048
     Dates: start: 201806, end: 20180719

REACTIONS (10)
  - Localised infection [Not Recovered/Not Resolved]
  - Pain [Unknown]
  - Fall [Unknown]
  - Pain in extremity [Unknown]
  - Mental disorder [Unknown]
  - Gait disturbance [Unknown]
  - Headache [Unknown]
  - Arthritis infective [Unknown]
  - Mobility decreased [Unknown]
  - Hand deformity [Unknown]

NARRATIVE: CASE EVENT DATE: 2018
